FAERS Safety Report 9365761 (Version 1)
Quarter: 2013Q2

REPORT INFORMATION
  Report Type: Spontaneous
  Country: US (occurrence: None)
  Receive Date: 20130624
  Receipt Date: 20130624
  Transmission Date: 20140414
  Serious: Yes (Other)
  Sender: FDA-Public Use
  Company Number: None

PATIENT
  Age: 63 Year
  Sex: Female

DRUGS (1)
  1. AVONEX 30MCG BIOGEN [Suspect]
     Indication: MULTIPLE SCLEROSIS
     Dosage: 30MCG  QWEEK  IM
     Route: 030
     Dates: start: 20121120, end: 20130315

REACTIONS (1)
  - Convulsion [None]
